FAERS Safety Report 7750886-8 (Version None)
Quarter: 2011Q3

REPORT INFORMATION
  Report Type: 
  Country: None (occurrence: None)
  Receive Date: 20110914
  Receipt Date: 20110905
  Transmission Date: 20111222
  Serious: Yes (Hospitalization)
  Sender: FDA-Public Use
  Company Number: GB-ASTRAZENECA-2011SE53204

PATIENT
  Age: 42 Year
  Sex: Male

DRUGS (7)
  1. SYMBICORT [Suspect]
     Route: 055
  2. CETIRIZINE HCL [Concomitant]
  3. VENTOLIN HFA [Concomitant]
     Dates: start: 20110519
  4. BUDESONIDE [Concomitant]
  5. BECLOMETHASONE DIPROPIONATE [Concomitant]
  6. RANITIDINE [Concomitant]
  7. BECONASE [Concomitant]

REACTIONS (5)
  - CHEST PAIN [None]
  - AGITATION [None]
  - PARAESTHESIA [None]
  - URTICARIA [None]
  - RASH MACULO-PAPULAR [None]
